FAERS Safety Report 16016361 (Version 1)
Quarter: 2019Q1

REPORT INFORMATION
  Report Type: Spontaneous
  Country: NL (occurrence: NL)
  Receive Date: 20190228
  Receipt Date: 20190228
  Transmission Date: 20190418
  Serious: Yes (Life-Threatening, Hospitalization)
  Sender: FDA-Public Use
  Company Number: NL-TEVA-2019-NL-1017810

PATIENT
  Age: 40 Year
  Sex: Male

DRUGS (7)
  1. NIFEDIPINE SANDOZ RETARD TABLET MGA 30MG [Concomitant]
     Dosage: 30 MILLIGRAM DAILY; 1D1T
  2. BIPERIDEEN TABLET 2MG [Concomitant]
     Dosage: 4 MILLIGRAM DAILY; 2D1T
  3. CARBASALAATCALCIUM POEDER 600MG [Concomitant]
     Dosage: 1800 MILLIGRAM DAILY; 3D1P
     Dates: start: 20190128
  4. DOXAZOSINE TABLET MGA 4MG [Concomitant]
     Dosage: 8 MILLIGRAM DAILY; 1D2RC
  5. LISINOPRIL TABLET, 20 MG (MILLIGRAM)LISINOPRIL TABLET 20MG [Suspect]
     Active Substance: LISINOPRIL
     Indication: ESSENTIAL HYPERTENSION
     Dosage: 20 MILLIGRAM DAILY; 1X PER DAY 1
     Dates: start: 20131231, end: 20190130
  6. LISINOPRIL/HYDROCHLOORTHIAZIDE TABLET 20/12,5MG [Concomitant]
  7. ZUCLOPENTIXOL INJVLST 200MG/ML AMP 1ML DEPOT 2 [Concomitant]

REACTIONS (1)
  - Palatal swelling [Recovered/Resolved]

NARRATIVE: CASE EVENT DATE: 20190128
